FAERS Safety Report 5810964-7 (Version None)
Quarter: 2008Q3

REPORT INFORMATION
  Report Type: 
  Country: None (occurrence: None)
  Receive Date: 20080716
  Receipt Date: 20080711
  Transmission Date: 20090109
  Serious: Yes (Hospitalization)
  Sender: FDA-Public Use
  Company Number: PHHO2005CN09935

PATIENT
  Sex: Male
  Weight: 62 kg

DRUGS (1)
  1. ZELMAC HTF+TAB [Suspect]
     Indication: CONSTIPATION
     Dosage: 6 MG, BID
     Route: 048
     Dates: start: 20050526, end: 20050626

REACTIONS (6)
  - ABDOMINAL RIGIDITY [None]
  - METASTASES TO LYMPH NODES [None]
  - NEPHROLITHIASIS [None]
  - POLYCYSTIC LIVER DISEASE [None]
  - RENAL CYST [None]
  - URETERIC CANCER [None]
